FAERS Safety Report 5821673-2 (Version None)
Quarter: 2008Q3

REPORT INFORMATION
  Report Type: 
  Country: None (occurrence: None)
  Receive Date: 20080724
  Receipt Date: 20080716
  Transmission Date: 20090109
  Serious: Yes (Hospitalization)
  Sender: FDA-Public Use
  Company Number: PE-ASTRAZENECA-2008UW14172

PATIENT
  Age: 73 Year
  Sex: Female
  Weight: 74 kg

DRUGS (9)
  1. NEXIUM [Suspect]
     Route: 048
     Dates: start: 20080606, end: 20080611
  2. UNSPECIFIED [Suspect]
     Indication: RHEUMATOID ARTHRITIS
     Dosage: 3 IN 1D
     Route: 048
     Dates: start: 20080606, end: 20080611
  3. RISEDRONATE SODIUM [Concomitant]
     Route: 048
     Dates: start: 20070301, end: 20080611
  4. CALCIUM CARBONATE [Concomitant]
     Route: 048
     Dates: start: 20070301, end: 20080611
  5. VITAMIN D [Concomitant]
     Dates: start: 20070301, end: 20080611
  6. PREDNISONE TAB [Concomitant]
     Dates: start: 20000101, end: 20080611
  7. LEFLUNOMIDE [Concomitant]
     Route: 048
     Dates: start: 20020101, end: 20080611
  8. ENALAPRIL MALEATE [Concomitant]
     Dates: start: 20050601, end: 20080611
  9. SIMVASTATIN [Concomitant]
     Route: 048
     Dates: start: 20060301, end: 20080611

REACTIONS (1)
  - ATRIAL FIBRILLATION [None]
